FAERS Safety Report 6828668-0 (Version None)
Quarter: 2010Q3

REPORT INFORMATION
  Report Type: 
  Country: None (occurrence: None)
  Receive Date: 20100709
  Receipt Date: 20070215
  Transmission Date: 20110219
  Serious: No
  Sender: FDA-Public Use
  Company Number: US-PFIZER INC-2007013395

PATIENT
  Sex: Male
  Weight: 104.33 kg

DRUGS (13)
  1. CHANTIX [Suspect]
     Indication: SMOKING CESSATION THERAPY
     Route: 048
     Dates: start: 20070201
  2. POTASSIUM [Concomitant]
  3. PAXIL [Concomitant]
  4. PEPCID [Concomitant]
  5. NEXIUM [Concomitant]
  6. GLYBURIDE [Concomitant]
  7. XANAX [Concomitant]
  8. VICODIN HP [Concomitant]
  9. DEPAKOTE [Concomitant]
  10. SEROQUEL [Concomitant]
  11. CLONIDINE [Concomitant]
  12. RESTORIL [Concomitant]
  13. TRICOR [Concomitant]

REACTIONS (1)
  - MIGRAINE [None]
